FAERS Safety Report 16543124 (Version 1)
Quarter: 2019Q3

REPORT INFORMATION
  Report Type: Spontaneous
  Country: CN (occurrence: CN)
  Receive Date: 20190709
  Receipt Date: 20190709
  Transmission Date: 20191004
  Serious: Yes (Other)
  Sender: FDA-Public Use
  Company Number: CN-ROCHE-2349357

PATIENT
  Age: 58 Year
  Sex: Male

DRUGS (5)
  1. BEVACIZUMAB. [Suspect]
     Active Substance: BEVACIZUMAB
     Indication: LUNG ADENOCARCINOMA
     Dosage: THE FIRST DAY OF A CYCLE
     Route: 065
     Dates: start: 20190502
  2. PEMETREXED. [Concomitant]
     Active Substance: PEMETREXED
     Indication: LUNG ADENOCARCINOMA
     Route: 065
     Dates: start: 20190502
  3. PEMETREXED. [Concomitant]
     Active Substance: PEMETREXED
     Indication: METASTASES TO LYMPH NODES
  4. BEVACIZUMAB. [Suspect]
     Active Substance: BEVACIZUMAB
     Indication: METASTASES TO LYMPH NODES
  5. CISPLATIN. [Concomitant]
     Active Substance: CISPLATIN
     Dosage: 40MG ON DAY 1 AND DAY 2, 50MG ON DAY 3
     Route: 065
     Dates: start: 20190502

REACTIONS (4)
  - Sinus bradycardia [Unknown]
  - Bone marrow failure [Recovering/Resolving]
  - Tumour necrosis [Unknown]
  - Renal cyst [Unknown]
